FAERS Safety Report 21162274 (Version 1)
Quarter: 2022Q3

REPORT INFORMATION
  Report Type: Spontaneous
  Country: US (occurrence: US)
  Receive Date: 20220802
  Receipt Date: 20220802
  Transmission Date: 20221026
  Serious: Yes (Other)
  Sender: FDA-Public Use
  Company Number: US-GW PHARMA-2022-US-025189

PATIENT
  Sex: Female
  Weight: 60 kg

DRUGS (1)
  1. EPIDIOLEX [Suspect]
     Active Substance: CANNABIDIOL
     Indication: Epilepsy
     Dosage: 4 MILLILITER, BID
     Route: 048

REACTIONS (3)
  - Fall [Unknown]
  - COVID-19 [Unknown]
  - Contusion [Unknown]
